FAERS Safety Report 15452646 (Version 1)
Quarter: 2018Q4

REPORT INFORMATION
  Report Type: Spontaneous
  Country: US (occurrence: US)
  Receive Date: 20181001
  Receipt Date: 20181001
  Transmission Date: 20190204
  Serious: Yes (Other)
  Sender: FDA-Public Use
  Company Number: US-JAZZ-JPI-P-020616

PATIENT
  Age: 26 Year
  Sex: Female
  Weight: 90.91 kg

DRUGS (7)
  1. ZOLOFT [Concomitant]
     Active Substance: SERTRALINE HYDROCHLORIDE
  2. XYREM [Suspect]
     Active Substance: SODIUM OXYBATE
     Indication: SOMNOLENCE
     Dosage: 3 G, BID
     Route: 048
     Dates: start: 20120405, end: 20120521
  3. XYREM [Suspect]
     Active Substance: SODIUM OXYBATE
     Indication: CATAPLEXY
     Route: 048
     Dates: start: 20120309, end: 20120404
  4. ALLEGRA [Concomitant]
     Active Substance: FEXOFENADINE HYDROCHLORIDE
  5. FIORICET [Concomitant]
     Active Substance: ACETAMINOPHEN\BUTALBITAL\CAFFEINE
  6. XYREM [Suspect]
     Active Substance: SODIUM OXYBATE
     Indication: NARCOLEPSY
     Dosage: 3.75 G, BID
     Route: 048
     Dates: start: 20120522, end: 20120529
  7. RITALIN [Concomitant]
     Active Substance: METHYLPHENIDATE HYDROCHLORIDE

REACTIONS (23)
  - Condition aggravated [Recovering/Resolving]
  - Infection [Unknown]
  - Cataplexy [Unknown]
  - Grip strength decreased [Unknown]
  - Procedural pain [Not Recovered/Not Resolved]
  - Abdominal pain upper [Not Recovered/Not Resolved]
  - Nasopharyngitis [Unknown]
  - Hunger [Unknown]
  - Pain in extremity [Not Recovered/Not Resolved]
  - Bronchitis [Unknown]
  - Seasonal allergy [Recovering/Resolving]
  - Throat irritation [Unknown]
  - Memory impairment [Unknown]
  - Therapeutic response decreased [Unknown]
  - Initial insomnia [Unknown]
  - Nausea [Unknown]
  - Poor quality sleep [Unknown]
  - Atypical pneumonia [Unknown]
  - Somnolence [Not Recovered/Not Resolved]
  - Clumsiness [Unknown]
  - Nasal congestion [Unknown]
  - Migraine [Unknown]
  - Feeling abnormal [Unknown]

NARRATIVE: CASE EVENT DATE: 201203
